FAERS Safety Report 23991187 (Version 2)
Quarter: 2024Q3

REPORT INFORMATION
  Report Type: Report from Study
  Country: US (occurrence: US)
  Receive Date: 20240619
  Receipt Date: 20240709
  Transmission Date: 20241016
  Serious: No
  Sender: Unknown Manufacturer
  Company Number: US-OTTER-US-2024AST000240

PATIENT
  Sex: Female

DRUGS (3)
  1. OTREXUP [Suspect]
     Active Substance: METHOTREXATE
     Indication: Rheumatoid arthritis
     Dosage: 20 MILLIGRAM, QW
     Route: 058
     Dates: start: 202402
  2. OTREXUP [Suspect]
     Active Substance: METHOTREXATE
     Indication: Osteoporosis
  3. TYMLOS [Concomitant]
     Active Substance: ABALOPARATIDE
     Indication: Product used for unknown indication
     Dosage: PEN
     Route: 065

REACTIONS (2)
  - Product use in unapproved indication [Unknown]
  - No adverse event [Unknown]

NARRATIVE: CASE EVENT DATE: 20240101
